FAERS Safety Report 4740475-1 (Version None)
Quarter: 2005Q3

REPORT INFORMATION
  Report Type: 
  Country: None (occurrence: None)
  Receive Date: 20050810
  Receipt Date: 20050802
  Transmission Date: 20060218
  Serious: Yes (Life-Threatening)
  Sender: FDA-Public Use
  Company Number: US-BOEHRINGER INGELHEIM PHARMACEUTICALS, INC.-2005-DE-02992GD

PATIENT
  Age: 33 Year
  Sex: Female

DRUGS (6)
  1. IPRATROPIUM BROMIDE [Suspect]
     Indication: ASTHMA
     Route: 055
  2. IPRATROPIUM BROMIDE [Suspect]
     Route: 055
  3. ALBUTEROL SULFATE [Suspect]
     Indication: ASTHMA
     Route: 055
  4. ALBUTEROL SULFATE [Suspect]
     Route: 055
  5. METHYLPREDNISOLONE 16MG TAB [Suspect]
     Indication: ASTHMA
     Route: 042
  6. MEDICINALPRODUCT NOT SPECIFIED BY SENDER [Concomitant]

REACTIONS (8)
  - ASTHMA [None]
  - BLOOD PH DECREASED [None]
  - CAESAREAN SECTION [None]
  - CONDITION AGGRAVATED [None]
  - HYPERCAPNIA [None]
  - OXYGEN SATURATION DECREASED [None]
  - RESPIRATORY FAILURE [None]
  - STATUS ASTHMATICUS [None]
